FAERS Safety Report 5000920-3 (Version None)
Quarter: 2006Q2

REPORT INFORMATION
  Report Type: 
  Country: None (occurrence: None)
  Receive Date: 20060512
  Receipt Date: 20060215
  Transmission Date: 20061013
  Serious: Yes (Hospitalization)
  Sender: FDA-Public Use
  Company Number: US-MERCK-0602USA04456

PATIENT
  Sex: Male
  Weight: 109 kg

DRUGS (8)
  1. VIOXX [Suspect]
     Indication: SPONDYLITIS
     Route: 048
     Dates: start: 19991122, end: 20031231
  2. VIOXX [Suspect]
     Route: 048
     Dates: start: 20031231, end: 20040901
  3. COLAZAL [Concomitant]
     Indication: COLITIS ULCERATIVE
     Route: 065
  4. ZOCOR [Concomitant]
     Indication: BLOOD CHOLESTEROL INCREASED
     Route: 065
     Dates: start: 20010309
  5. LOTREL [Concomitant]
     Indication: HYPERTENSION
     Route: 065
     Dates: start: 19960101
  6. DYAZIDE [Concomitant]
     Indication: HYPERTENSION
     Route: 065
     Dates: start: 19960101
  7. PREDNISONE [Concomitant]
     Route: 065
  8. TRIAM-A [Concomitant]
     Route: 065

REACTIONS (2)
  - CEREBROVASCULAR ACCIDENT [None]
  - DEPRESSION [None]
